FAERS Safety Report 6923166-8 (Version None)
Quarter: 2010Q3

REPORT INFORMATION
  Report Type: 
  Country: None (occurrence: None)
  Receive Date: 20100813
  Receipt Date: 20100804
  Transmission Date: 20110219
  Serious: Yes (Other)
  Sender: FDA-Public Use
  Company Number: US-ROCHE-683820

PATIENT
  Sex: Female
  Weight: 61.2 kg

DRUGS (3)
  1. CAPECITABINE [Suspect]
     Indication: COLORECTAL CANCER
     Dosage: ROUTE: BY MOUTH
     Route: 048
     Dates: start: 20100121, end: 20100121
  2. CAPECITABINE [Suspect]
     Route: 048
  3. OXALIPLATIN [Suspect]
     Indication: COLORECTAL CANCER
     Dosage: FORM: INFUSION
     Route: 042
     Dates: start: 20100121, end: 20100121

REACTIONS (9)
  - ABASIA [None]
  - ABDOMINAL PAIN [None]
  - BLOOD PRESSURE INCREASED [None]
  - DIARRHOEA [None]
  - ERYTHEMA [None]
  - FEELING ABNORMAL [None]
  - OROPHARYNGEAL BLISTERING [None]
  - PARAESTHESIA [None]
  - VOMITING [None]
